FAERS Safety Report 6175616-5 (Version None)
Quarter: 2009Q2

REPORT INFORMATION
  Report Type: 
  Country: None (occurrence: None)
  Receive Date: 20090429
  Receipt Date: 20090420
  Transmission Date: 20091009
  Serious: Yes (Hospitalization)
  Sender: FDA-Public Use
  Company Number: FRP09000461

PATIENT
  Sex: Female

DRUGS (1)
  1. ACTONEL [Suspect]
     Indication: OSTEOPOROSIS PROPHYLAXIS
     Dosage: 75 MG, 2 CD/MONTH, ORAL
     Route: 048

REACTIONS (4)
  - DRUG ADMINISTRATION ERROR [None]
  - GASTROINTESTINAL PAIN [None]
  - INTESTINAL OBSTRUCTION [None]
  - MALAISE [None]
